FAERS Safety Report 4852711-1 (Version None)
Quarter: 2005Q4

REPORT INFORMATION
  Report Type: 
  Country: None (occurrence: None)
  Receive Date: 20051213
  Receipt Date: 20051205
  Transmission Date: 20060501
  Serious: Yes (Death)
  Sender: FDA-Public Use
  Company Number: MY-MERCK-0512MYS00003

PATIENT
  Sex: Female

DRUGS (1)
  1. CANCIDAS [Suspect]
     Indication: FUNGAEMIA
     Route: 065
     Dates: start: 20051126, end: 20051126

REACTIONS (1)
  - DISSEMINATED INTRAVASCULAR COAGULATION [None]
